FAERS Safety Report 10560202 (Version 1)
Quarter: 2014Q4

REPORT INFORMATION
  Report Type: Report from Study
  Country: US (occurrence: None)
  Receive Date: 20141030
  Receipt Date: 20141030
  Transmission Date: 20150529
  Serious: Yes (Hospitalization)
  Sender: FDA-Public Use
  Company Number: 2014SA054606

PATIENT
  Age: 43 Year
  Sex: Male

DRUGS (2)
  1. HUMALOG [Suspect]
     Active Substance: INSULIN LISPRO
     Indication: TYPE 1 DIABETES MELLITUS
  2. LANTUS [Suspect]
     Active Substance: INSULIN GLARGINE
     Indication: TYPE 1 DIABETES MELLITUS
     Dosage: 37 UNIT(SS); DAILY; SUBCUTANEOUS
     Route: 058
     Dates: start: 2012

REACTIONS (9)
  - Renal disorder [None]
  - Blood glucose increased [None]
  - Somnolence [None]
  - Mobility decreased [None]
  - Skin ulcer [None]
  - Asthenia [None]
  - Fluid retention [None]
  - Drug dose omission [None]
  - Lethargy [None]
